FAERS Safety Report 5889555-8 (Version None)
Quarter: 2008Q3

REPORT INFORMATION
  Report Type: 
  Country: None (occurrence: None)
  Receive Date: 20080919
  Receipt Date: 20080909
  Transmission Date: 20090109
  Serious: Yes (Death)
  Sender: FDA-Public Use
  Company Number: A0747353A

PATIENT
  Age: 73 Year
  Sex: Male

DRUGS (1)
  1. ROSIGLITAZONE [Suspect]
     Route: 048
     Dates: start: 20060215, end: 20060330

REACTIONS (7)
  - ANOREXIA [None]
  - ASTHENIA [None]
  - COLON CANCER [None]
  - CONDITION AGGRAVATED [None]
  - DYSPNOEA [None]
  - LUNG SQUAMOUS CELL CARCINOMA STAGE UNSPECIFIED [None]
  - MULTI-ORGAN FAILURE [None]
